FAERS Safety Report 9489472 (Version 2)
Quarter: 2013Q3

REPORT INFORMATION
  Report Type: Spontaneous
  Country: KR (occurrence: KR)
  Receive Date: 20130829
  Receipt Date: 20130906
  Transmission Date: 20140515
  Serious: Yes (Other)
  Sender: FDA-Public Use
  Company Number: PHHY2013KR092169

PATIENT
  Age: 60 Year
  Sex: Male

DRUGS (2)
  1. RIBAVIRIN [Suspect]
     Indication: CHRONIC HEPATITIS C
     Dosage: 1000 MG DAILY
     Route: 048
  2. INTERFERON ALFA 2B [Suspect]
     Indication: CHRONIC HEPATITIS C
     Dosage: 100 UG, QW
     Route: 058

REACTIONS (2)
  - Deafness neurosensory [Recovered/Resolved]
  - Tinnitus [Recovered/Resolved]
